FAERS Safety Report 24752054 (Version 2)
Quarter: 2025Q1

REPORT INFORMATION
  Report Type: Report from Study
  Country: US (occurrence: US)
  Receive Date: 20241219
  Receipt Date: 20250118
  Transmission Date: 20250409
  Serious: Yes (Other)
  Sender: ABBVIE
  Company Number: US-ABBVIE-5884397

PATIENT
  Age: 60 Year
  Sex: Female

DRUGS (3)
  1. RINVOQ [Suspect]
     Active Substance: UPADACITINIB
     Indication: Colitis ulcerative
     Route: 048
     Dates: start: 20200101
  2. RINVOQ [Suspect]
     Active Substance: UPADACITINIB
     Indication: Colitis ulcerative
     Route: 048
     Dates: start: 20240222
  3. RINVOQ [Suspect]
     Active Substance: UPADACITINIB
     Indication: Colitis ulcerative
     Route: 048
     Dates: start: 20241128

REACTIONS (8)
  - Nerve compression [Unknown]
  - Sciatica [Not Recovered/Not Resolved]
  - Inflammatory marker increased [Unknown]
  - Colitis ulcerative [Recovered/Resolved]
  - Neuralgia [Unknown]
  - Hypoaesthesia [Unknown]
  - Burning sensation [Unknown]
  - Spinal fusion surgery [Recovered/Resolved]

NARRATIVE: CASE EVENT DATE: 20240101
